FAERS Safety Report 10506640 (Version 1)
Quarter: 2014Q4

REPORT INFORMATION
  Report Type: Spontaneous
  Country: DE (occurrence: None)
  Receive Date: 20141007
  Receipt Date: 20141007
  Transmission Date: 20150528
  Serious: Yes (Death)
  Sender: FDA-Public Use
  Company Number: INT_00453_2014

PATIENT
  Age: 45 Year
  Sex: Male

DRUGS (4)
  1. IFOSFAMIDE. [Suspect]
     Active Substance: IFOSFAMIDE
  2. ETOPOSIDE. [Suspect]
     Active Substance: ETOPOSIDE
     Indication: TESTICULAR GERM CELL CANCER
     Dosage: ([DOSE AND FREQUENCY UNKNOWN, 1 CYCLES PRIOR TO THE EVENT])
  3. CISPLATIN. [Suspect]
     Active Substance: CISPLATIN
     Indication: TESTICULAR GERM CELL CANCER
     Dosage: ([DOSE AND FREQUENCY UNKNOWN, 1 CYCLES PRIOR TO THE EVENT])
  4. BLEOMYCIN [Suspect]
     Active Substance: BLEOMYCIN SULFATE
     Indication: TESTICULAR GERM CELL CANCER
     Dosage: ([DOSE AND FREQUENCY UNKNOWN, 1 CYCLES PRIOR TO THE EVENT])

REACTIONS (1)
  - Myocardial infarction [None]
